FAERS Safety Report 14944945 (Version 1)
Quarter: 2018Q2

REPORT INFORMATION
  Report Type: Spontaneous
  Country: GB (occurrence: GB)
  Receive Date: 20180529
  Receipt Date: 20180529
  Transmission Date: 20180711
  Serious: Yes (Other)
  Sender: FDA-Public Use
  Company Number: GB-TEVA-2018-GB-898581

PATIENT
  Age: 9 Year
  Sex: Male
  Weight: 31.71 kg

DRUGS (1)
  1. SALAMOL [Suspect]
     Active Substance: ALBUTEROL
     Indication: DYSPNOEA
     Dosage: TWO PUFFS
     Route: 055
     Dates: start: 20180324, end: 20180324

REACTIONS (1)
  - Crying [Recovered/Resolved]
